FAERS Safety Report 5938705-3 (Version None)
Quarter: 2008Q4

REPORT INFORMATION
  Report Type: 
  Country: None (occurrence: None)
  Receive Date: 20081103
  Receipt Date: 20081023
  Transmission Date: 20090506
  Serious: Yes (Hospitalization)
  Sender: FDA-Public Use
  Company Number: NZ-ELI_LILLY_AND_COMPANY-NZ200810006775

PATIENT
  Age: 16 Year
  Sex: Female

DRUGS (4)
  1. HUMALOG [Suspect]
     Dosage: 55 U, EACH MORNING
     Route: 065
  2. HUMALOG [Suspect]
     Dosage: 50 U, EACH EVENING
     Route: 065
  3. HUMALOG [Suspect]
     Dosage: 55 U, EACH MORNING
     Route: 065
  4. HUMALOG [Suspect]
     Dosage: 50 U, EACH EVENING
     Route: 065

REACTIONS (2)
  - LOSS OF CONSCIOUSNESS [None]
  - MEDICATION ERROR [None]
